FAERS Safety Report 8023232-2 (Version None)
Quarter: 2012Q1

REPORT INFORMATION
  Report Type: 
  Country: None (occurrence: None)
  Receive Date: 20120104
  Receipt Date: 20111229
  Transmission Date: 20120608
  Serious: Yes (Other)
  Sender: FDA-Public Use
  Company Number: CA-ABBOTT-11P-028-0887533-00

PATIENT
  Sex: Female
  Weight: 59.02 kg

DRUGS (3)
  1. RABEPRAZOLE SODIUM [Concomitant]
     Indication: ANTACID THERAPY
     Dosage: 20MG OD
     Route: 048
  2. HUMIRA [Suspect]
     Indication: CROHN'S DISEASE
     Route: 058
     Dates: start: 20100712, end: 20111221
  3. HUMIRA [Suspect]
     Route: 058
     Dates: start: 20111207, end: 20111221

REACTIONS (6)
  - DRUG INEFFECTIVE [None]
  - GASTROINTESTINAL INFLAMMATION [None]
  - CROHN'S DISEASE [None]
  - VOMITING [None]
  - PAIN [None]
  - DIARRHOEA [None]
